FAERS Safety Report 15012264 (Version 3)
Quarter: 2020Q4

REPORT INFORMATION
  Report Type: Spontaneous
  Country: US (occurrence: US)
  Receive Date: 20180614
  Receipt Date: 20201222
  Transmission Date: 20210113
  Serious: Yes (Other)
  Sender: FDA-Public Use
  Company Number: US-PFIZER INC-2018239033

PATIENT
  Age: 67 Year
  Sex: Female

DRUGS (1)
  1. IBRANCE [Suspect]
     Active Substance: PALBOCICLIB
     Indication: BREAST CANCER FEMALE
     Dosage: 100 MG, CYCLIC, ONCE A DAY X 21 DAYS
     Dates: start: 20180706

REACTIONS (4)
  - Osteoporosis [Unknown]
  - Pathological fracture [Unknown]
  - Dyskinesia [Unknown]
  - Dental discomfort [Unknown]
